FAERS Safety Report 24708746 (Version 2)
Quarter: 2025Q2

REPORT INFORMATION
  Report Type: Spontaneous
  Country: US (occurrence: US)
  Receive Date: 20241207
  Receipt Date: 20250409
  Transmission Date: 20250716
  Serious: No
  Sender: SANOFI AVENTIS
  Company Number: US-SA-2024SA359338

PATIENT
  Age: 44 Year
  Sex: Female

DRUGS (4)
  1. KEVZARA [Suspect]
     Active Substance: SARILUMAB
     Indication: Rheumatoid arthritis
     Dosage: 200 MG, QOW
     Route: 058
     Dates: start: 20240903
  2. KEVZARA [Suspect]
     Active Substance: SARILUMAB
     Indication: Osteoarthritis
  3. TRAZODONE HCL [Concomitant]
     Active Substance: TRAZODONE HYDROCHLORIDE
  4. LAMICTAL [Concomitant]
     Active Substance: LAMOTRIGINE

REACTIONS (3)
  - Bronchitis [Unknown]
  - Sinusitis [Unknown]
  - Product container seal issue [Unknown]

NARRATIVE: CASE EVENT DATE: 20241123
